FAERS Safety Report 9119471 (Version 1)
Quarter: 2013Q1

REPORT INFORMATION
  Report Type: Spontaneous
  Country: US (occurrence: US)
  Receive Date: 20130207
  Receipt Date: 20130207
  Transmission Date: 20140127
  Serious: No
  Sender: FDA-Public Use
  Company Number: US-PFIZER INC-2013044064

PATIENT
  Age: 83 Year
  Sex: Female

DRUGS (3)
  1. ZYVOX [Suspect]
     Indication: SKIN INFECTION
     Dosage: UNK
  2. ZYVOX [Suspect]
     Indication: DIABETIC FOOT INFECTION
  3. CIPRO [Concomitant]
     Indication: KIDNEY INFECTION

REACTIONS (5)
  - Anaemia [Unknown]
  - Thrombocytopenia [Unknown]
  - Dry mouth [Unknown]
  - Stomatitis [Unknown]
  - Diarrhoea [Unknown]
